FAERS Safety Report 23676934 (Version 1)
Quarter: 2024Q1

REPORT INFORMATION
  Report Type: Spontaneous
  Country: CA (occurrence: CA)
  Receive Date: 20240327
  Receipt Date: 20240327
  Transmission Date: 20240409
  Serious: Yes (Life-Threatening)
  Sender: FDA-Public Use
  Company Number: CA-009507513-1705CAN014292

PATIENT
  Age: 54 Year
  Sex: Female
  Weight: 108 kg

DRUGS (4)
  1. ZENHALE [Suspect]
     Active Substance: FORMOTEROL FUMARATE\MOMETASONE FUROATE
     Indication: Sinusitis
     Dosage: 2 DOSAGE FORMS, UNK
     Route: 048
  2. ZENHALE [Suspect]
     Active Substance: FORMOTEROL FUMARATE\MOMETASONE FUROATE
     Indication: Respiratory tract infection
  3. MOMETASONE [Suspect]
     Active Substance: MOMETASONE
     Indication: Sinusitis
     Dosage: UNK
     Route: 065
  4. AMOXICILLIN [Concomitant]
     Active Substance: AMOXICILLIN
     Dosage: UNK
     Route: 065

REACTIONS (7)
  - Anaphylactic reaction [Recovered/Resolved]
  - Anxiety [Recovered/Resolved]
  - Hypertension [Recovered/Resolved]
  - Obstructive airways disorder [Recovered/Resolved]
  - Pharyngeal oedema [Recovered/Resolved]
  - Rhinorrhoea [Recovered/Resolved]
  - Tachycardia [Recovered/Resolved]
